FAERS Safety Report 25264069 (Version 1)
Quarter: 2025Q2

REPORT INFORMATION
  Report Type: Report from Study
  Country: EG (occurrence: EG)
  Receive Date: 20250502
  Receipt Date: 20250502
  Transmission Date: 20250717
  Serious: Yes (Life-Threatening, Other)
  Sender: SANDOZ
  Company Number: EG-002147023-NVSC2023EG064872

PATIENT
  Sex: Female
  Weight: 90 kg

DRUGS (9)
  1. HYRIMOZ [Suspect]
     Active Substance: ADALIMUMAB-ADAZ
     Indication: Psoriatic arthropathy
     Dosage: 2 DOSAGE FORM, Q2W (WITHOUT TAKING LOADING DOSE)
     Route: 065
  2. HYRIMOZ [Suspect]
     Active Substance: ADALIMUMAB-ADAZ
     Indication: Psoriasis
     Dosage: 40 MG, Q2W
     Route: 058
     Dates: start: 20221224, end: 20240912
  3. METHOTREXATE [Suspect]
     Active Substance: METHOTREXATE
     Indication: Psoriasis
     Route: 058
  4. METHOTREXATE [Suspect]
     Active Substance: METHOTREXATE
     Indication: Psoriatic arthropathy
     Route: 065
  5. CRESTOR [Concomitant]
     Active Substance: ROSUVASTATIN CALCIUM
     Indication: Blood cholesterol
     Dosage: 1 DOSAGE FORM, QD (5, START DATE 10 YEARS AGO)
     Route: 065
  6. Erastapex trio [Concomitant]
     Indication: Product used for unknown indication
     Route: 048
  7. ISOPTIN [Concomitant]
     Active Substance: VERAPAMIL HYDROCHLORIDE
     Indication: Ear disorder
     Dosage: 1 DOSAGE FORM, QD 240 (START DATE 10 YEARS AGO)
     Route: 065
  8. BENFOTIAMINE\CYANOCOBALAMIN\PYRIDOXINE HYDROCHLORIDE [Concomitant]
     Active Substance: BENFOTIAMINE\CYANOCOBALAMIN\PYRIDOXINE HYDROCHLORIDE
     Indication: Vitamin supplementation
     Route: 065
  9. METOPROLOL SUCCINATE [Concomitant]
     Active Substance: METOPROLOL SUCCINATE
     Indication: Product used for unknown indication
     Route: 048

REACTIONS (18)
  - Brain tumour operation [Unknown]
  - Brain neoplasm [Unknown]
  - Nasopharyngitis [Recovered/Resolved]
  - Psoriasis [Unknown]
  - Mental disorder [Unknown]
  - Spinal pain [Recovering/Resolving]
  - C-reactive protein increased [Not Recovered/Not Resolved]
  - Neuritis [Unknown]
  - Menstrual disorder [Unknown]
  - Back pain [Recovering/Resolving]
  - Injection site pain [Unknown]
  - Blood pressure increased [Unknown]
  - Cough [Unknown]
  - Alopecia [Unknown]
  - Fatigue [Unknown]
  - Product storage error [Unknown]
  - Product dose omission issue [Unknown]
  - Therapeutic product effect decreased [Unknown]
